FAERS Safety Report 22380571 (Version 1)
Quarter: 2023Q2

REPORT INFORMATION
  Report Type: Spontaneous
  Country: US (occurrence: US)
  Receive Date: 20230529
  Receipt Date: 20230529
  Transmission Date: 20230722
  Serious: No
  Sender: FDA-Public Use
  Company Number: US-SA-SAC20230526001373

PATIENT
  Age: 50 Year
  Sex: Female
  Weight: 111.1 kg

DRUGS (2)
  1. DUPIXENT [Suspect]
     Active Substance: DUPILUMAB
     Indication: Illness
     Dosage: UNK, 1X
  2. DUPIXENT [Suspect]
     Active Substance: DUPILUMAB
     Dosage: 300 MG, QOW
     Route: 058

REACTIONS (5)
  - Injection site urticaria [Recovered/Resolved]
  - Skin irritation [Unknown]
  - Skin haemorrhage [Unknown]
  - Scratch [Unknown]
  - Acne [Unknown]
